FAERS Safety Report 4862337-1 (Version None)
Quarter: 2005Q4

REPORT INFORMATION
  Report Type: 
  Country: None (occurrence: None)
  Receive Date: 20051221
  Receipt Date: 20051209
  Transmission Date: 20060501
  Serious: Yes (Other)
  Sender: FDA-Public Use
  Company Number: CA-BRISTOL-MYERS SQUIBB COMPANY-13218938

PATIENT
  Age: 81 Year
  Sex: Male

DRUGS (10)
  1. TEQUIN [Suspect]
     Route: 048
  2. WARFARIN [Concomitant]
  3. ALTACE [Concomitant]
  4. ASPIRIN [Concomitant]
  5. HUMULIN N [Concomitant]
  6. HUMULIN R [Concomitant]
     Route: 058
  7. METOCLOPRAMIDE [Concomitant]
     Route: 042
  8. METOPROLOL [Concomitant]
  9. PLAVIX [Concomitant]
  10. RANITIDINE [Concomitant]

REACTIONS (1)
  - HYPOGLYCAEMIA [None]
